FAERS Safety Report 15954067 (Version 1)
Quarter: 2019Q1

REPORT INFORMATION
  Report Type: Spontaneous
  Country: CN (occurrence: CN)
  Receive Date: 20190212
  Receipt Date: 20190212
  Transmission Date: 20190417
  Serious: Yes (Hospitalization)
  Sender: FDA-Public Use
  Company Number: CN-ELI_LILLY_AND_COMPANY-CN201902000284

PATIENT
  Age: 54 Year
  Sex: Male
  Weight: 64 kg

DRUGS (6)
  1. SODIUM CHLORIDE. [Suspect]
     Active Substance: SODIUM CHLORIDE
     Indication: NEOPLASM PROGRESSION
     Dosage: 150 ML, DAILY
     Route: 042
     Dates: start: 20181229, end: 20181229
  2. GEMCITABINE HYDROCHLORIDE. [Suspect]
     Active Substance: GEMCITABINE HYDROCHLORIDE
     Dosage: 1600 MG, DAILY
     Route: 042
     Dates: start: 20190104, end: 20190104
  3. GIMERACIL [Suspect]
     Active Substance: GIMERACIL
     Indication: NEOPLASM PROGRESSION
     Dosage: UNK UNK, UNKNOWN
     Route: 048
     Dates: start: 20181229, end: 20190111
  4. OTERACIL POTASSIUM [Suspect]
     Active Substance: OTERACIL POTASSIUM
     Indication: NEOPLASM PROGRESSION
     Dosage: 60 MG, BID
     Route: 048
     Dates: start: 20181229, end: 20190111
  5. GEMCITABINE HYDROCHLORIDE. [Suspect]
     Active Substance: GEMCITABINE HYDROCHLORIDE
     Indication: NEOPLASM PROGRESSION
     Dosage: 1600 MG, DAILY
     Route: 042
     Dates: start: 20181229, end: 20181229
  6. SODIUM CHLORIDE. [Suspect]
     Active Substance: SODIUM CHLORIDE
     Dosage: 150 ML, DAILY
     Route: 042
     Dates: start: 20190104, end: 20190104

REACTIONS (2)
  - Off label use [Unknown]
  - Drug eruption [Recovered/Resolved]

NARRATIVE: CASE EVENT DATE: 20190108
